FAERS Safety Report 10061142 (Version 2)
Quarter: 2014Q2

REPORT INFORMATION
  Report Type: Spontaneous
  Country: US (occurrence: US)
  Receive Date: 20140406
  Receipt Date: 20140519
  Transmission Date: 20141212
  Serious: Yes (Other)
  Sender: FDA-Public Use
  Company Number: US-BRISTOL-MYERS SQUIBB COMPANY-20592739

PATIENT
  Sex: Male

DRUGS (8)
  1. BYETTA [Suspect]
     Dates: start: 20090923, end: 20101004
  2. FENOFIBRATE [Concomitant]
  3. GLYBURIDE + METFORMIN HCL [Concomitant]
     Dosage: 1DF=5/500MG
  4. LISINOPRIL [Concomitant]
  5. OMEGA 3 FATTY ACID [Concomitant]
  6. POTASSIUM CITRATE [Concomitant]
  7. PRAVASTATIN SODIUM [Concomitant]
     Dosage: 1.5MG TABS
  8. MULTIVITAMIN [Concomitant]

REACTIONS (1)
  - Adenocarcinoma pancreas [Unknown]
